FAERS Safety Report 12778305 (Version 1)
Quarter: 2016Q3

REPORT INFORMATION
  Report Type: Spontaneous
  Country: IT (occurrence: IT)
  Receive Date: 20160926
  Receipt Date: 20160926
  Transmission Date: 20161109
  Serious: Yes (Other)
  Sender: FDA-Public Use
  Company Number: IT-ROCHE-1834474

PATIENT
  Age: 81 Year
  Sex: Male
  Weight: 80 kg

DRUGS (2)
  1. RIVAROXABAN [Concomitant]
     Active Substance: RIVAROXABAN
  2. RITUXIMAB [Suspect]
     Active Substance: RITUXIMAB
     Indication: INTERSTITIAL LUNG DISEASE
     Dosage: SOLUTION FOR INJECTION
     Route: 042
     Dates: start: 20160308, end: 20160629

REACTIONS (1)
  - Left ventricular dysfunction [Unknown]

NARRATIVE: CASE EVENT DATE: 20160601
